FAERS Safety Report 5752432-7 (Version None)
Quarter: 2008Q2

REPORT INFORMATION
  Report Type: 
  Country: None (occurrence: None)
  Receive Date: 20080529
  Receipt Date: 20080519
  Transmission Date: 20081010
  Serious: Yes (Hospitalization)
  Sender: FDA-Public Use
  Company Number: B0521143A

PATIENT
  Age: 75 Year
  Sex: Male

DRUGS (4)
  1. ARIXTRA [Suspect]
     Indication: PULMONARY EMBOLISM
     Dosage: 7.5MG PER DAY
     Route: 058
     Dates: start: 20080201, end: 20080316
  2. CHEMOTHERAPY [Concomitant]
     Indication: PROSTATE CANCER METASTATIC
     Route: 065
  3. TEGRETOL [Concomitant]
     Indication: EPILEPSY
     Route: 065
  4. FELODIPINE [Concomitant]
     Route: 065

REACTIONS (6)
  - ANAEMIA [None]
  - DUODENAL ULCER HAEMORRHAGE [None]
  - HAEMATEMESIS [None]
  - MELAENA [None]
  - SYNCOPE [None]
  - THROMBOSIS [None]
